FAERS Safety Report 18227795 (Version 3)
Quarter: 2020Q3

REPORT INFORMATION
  Report Type: Spontaneous
  Country: CN (occurrence: CN)
  Receive Date: 20200903
  Receipt Date: 20200918
  Transmission Date: 20201103
  Serious: Yes (Hospitalization, Other)
  Sender: FDA-Public Use
  Company Number: CN-ASTRAZENECA-2020SF07699

PATIENT
  Age: 75 Year
  Sex: Female

DRUGS (1)
  1. TAGRISSO [Suspect]
     Active Substance: OSIMERTINIB
     Indication: NON-SMALL CELL LUNG CANCER
     Route: 048

REACTIONS (8)
  - Cardiac failure [Recovering/Resolving]
  - Paranasal cyst [Unknown]
  - Dyspnoea [Unknown]
  - Pleural effusion [Recovering/Resolving]
  - Hepatic calcification [Unknown]
  - Nephrolithiasis [Unknown]
  - Pericardial effusion [Recovering/Resolving]
  - Renal cyst [Unknown]
